FAERS Safety Report 22638595 (Version 1)
Quarter: 2023Q2

REPORT INFORMATION
  Report Type: Spontaneous
  Country: US (occurrence: US)
  Receive Date: 20230626
  Receipt Date: 20230626
  Transmission Date: 20230722
  Serious: Yes (Other)
  Sender: FDA-Public Use
  Company Number: US-GLAXOSMITHKLINE-US2023AMR085800

PATIENT
  Sex: Female

DRUGS (3)
  1. BENLYSTA [Suspect]
     Active Substance: BELIMUMAB
     Indication: Systemic lupus erythematosus
     Dosage: 200 MG/ML, WE, (1 SYRINGE)
     Route: 058
     Dates: end: 20230522
  2. BENLYSTA [Suspect]
     Active Substance: BELIMUMAB
     Indication: Fibromyalgia
  3. BENLYSTA [Suspect]
     Active Substance: BELIMUMAB
     Indication: Osteoporotic fracture

REACTIONS (1)
  - Suicidal ideation [Unknown]
